FAERS Safety Report 23612111 (Version 1)
Quarter: 2024Q1

REPORT INFORMATION
  Report Type: Spontaneous
  Country: CZ (occurrence: CZ)
  Receive Date: 20240308
  Receipt Date: 20240308
  Transmission Date: 20240409
  Serious: Yes (Hospitalization, Disabling)
  Sender: FDA-Public Use
  Company Number: CZ-ABBVIE-15P-217-1399419-00

PATIENT
  Age: 17 Year
  Sex: Female
  Weight: 69 kg

DRUGS (9)
  1. AZATHIOPRINE [Suspect]
     Active Substance: AZATHIOPRINE
     Indication: Crohn^s disease
     Dosage: 50.000MG QD
     Route: 048
     Dates: start: 20121210, end: 20150505
  2. HUMIRA [Suspect]
     Active Substance: ADALIMUMAB
     Dosage: 40.000MG BIW
     Route: 058
     Dates: start: 20131011, end: 20141015
  3. HUMIRA [Suspect]
     Active Substance: ADALIMUMAB
     Dosage: 40.000MG BIW
     Route: 058
     Dates: start: 20150215, end: 20150508
  4. HUMIRA [Suspect]
     Active Substance: ADALIMUMAB
     Indication: Crohn^s disease
     Dosage: 40.000MG
     Route: 058
     Dates: start: 20150515, end: 20150722
  5. HUMIRA [Suspect]
     Active Substance: ADALIMUMAB
     Dosage: 40.000MG
     Route: 058
     Dates: start: 20141016, end: 20150201
  6. HUMIRA [Suspect]
     Active Substance: ADALIMUMAB
     Dosage: 40.000MG
     Route: 058
     Dates: start: 20150731
  7. HUMIRA [Suspect]
     Active Substance: ADALIMUMAB
     Dosage: UNK
     Route: 058
     Dates: start: 20131009
  8. METHOTREXATE [Suspect]
     Active Substance: METHOTREXATE
     Indication: Crohn^s disease
     Dosage: 25.000MG
     Route: 048
     Dates: start: 20150606, end: 20150722
  9. METHOTREXATE [Suspect]
     Active Substance: METHOTREXATE
     Dosage: 25.000MG
     Route: 048
     Dates: start: 20150731

REACTIONS (4)
  - Crohn^s disease [Recovered/Resolved]
  - Anaemia of chronic disease [Recovered/Resolved]
  - Iron deficiency anaemia [Recovered/Resolved]
  - Cystitis [Recovered/Resolved]

NARRATIVE: CASE EVENT DATE: 20150421
